FAERS Safety Report 24888506 (Version 1)
Quarter: 2025Q1

REPORT INFORMATION
  Report Type: Spontaneous
  Country: US (occurrence: US)
  Receive Date: 20250127
  Receipt Date: 20250127
  Transmission Date: 20250409
  Serious: Yes (Other)
  Sender: ACCORD
  Company Number: US-Accord-465791

PATIENT
  Age: 55 Year
  Sex: Male

DRUGS (13)
  1. EPLERENONE [Suspect]
     Active Substance: EPLERENONE
     Indication: Oedema
  2. MIFEPRISTONE [Suspect]
     Active Substance: MIFEPRISTONE
     Indication: Cushing^s syndrome
     Route: 048
     Dates: start: 20240619, end: 2024
  3. SEMAGLUTIDE [Suspect]
     Active Substance: SEMAGLUTIDE
     Indication: Product used for unknown indication
  4. HERBALS\TURMERIC [Concomitant]
     Active Substance: HERBALS\TURMERIC
  5. VITAMINS [Concomitant]
     Active Substance: VITAMINS
  6. TESTOSTERONE [Concomitant]
     Active Substance: TESTOSTERONE
  7. MENAQUINONE 5 [Concomitant]
     Active Substance: MENAQUINONE 5
  8. VITAMIN B COMPLEX [Concomitant]
     Active Substance: CYANOCOBALAMIN\DEXPANTHENOL\NIACINAMIDE\PYRIDOXINE HYDROCHLORIDE\RIBOFLAVIN 5^-PHOSPHATE SODIUM\THIA
  9. POTASSIUM CHLORIDE [Concomitant]
     Active Substance: POTASSIUM CHLORIDE
  10. CALCIUM W/MAGNESIUM/ZINC [Concomitant]
  11. FURSULTIAMINE HYDROCHLORIDE [Concomitant]
     Active Substance: FURSULTIAMINE HYDROCHLORIDE
  12. MIFEPRISTONE [Suspect]
     Active Substance: MIFEPRISTONE
     Indication: Cushing^s syndrome
     Route: 048
     Dates: start: 2024, end: 20240912
  13. MIFEPRISTONE [Suspect]
     Active Substance: MIFEPRISTONE
     Indication: Cushing^s syndrome
     Route: 048
     Dates: start: 20240913

REACTIONS (23)
  - Hyperplasia adrenal [Not Recovered/Not Resolved]
  - Blood testosterone decreased [Unknown]
  - Blood oestrogen increased [Not Recovered/Not Resolved]
  - Weight increased [Recovering/Resolving]
  - Restlessness [Not Recovered/Not Resolved]
  - Therapeutic response unexpected [Unknown]
  - Brain fog [Recovered/Resolved]
  - Pollakiuria [Unknown]
  - Mood altered [Not Recovered/Not Resolved]
  - Hyperhidrosis [Recovering/Resolving]
  - Temperature regulation disorder [Not Recovered/Not Resolved]
  - Blood glucose increased [Not Recovered/Not Resolved]
  - Confusional state [Not Recovered/Not Resolved]
  - Hot flush [Unknown]
  - Cardiac disorder [Unknown]
  - Food poisoning [Unknown]
  - Renal cyst [Not Recovered/Not Resolved]
  - Insomnia [Not Recovered/Not Resolved]
  - Blood pressure diastolic decreased [Not Recovered/Not Resolved]
  - Nausea [Not Recovered/Not Resolved]
  - Asthenia [Not Recovered/Not Resolved]
  - Muscle fatigue [Not Recovered/Not Resolved]
  - Fluid retention [Unknown]

NARRATIVE: CASE EVENT DATE: 20240101
